FAERS Safety Report 19666754 (Version 5)
Quarter: 2022Q1

REPORT INFORMATION
  Report Type: Spontaneous
  Country: US (occurrence: US)
  Receive Date: 20210806
  Receipt Date: 20220307
  Transmission Date: 20220423
  Serious: Yes (Other)
  Sender: FDA-Public Use
  Company Number: US-NOVOPROD-834489

PATIENT
  Sex: Female

DRUGS (1)
  1. TRESIBA [Suspect]
     Active Substance: INSULIN DEGLUDEC
     Indication: Type 2 diabetes mellitus
     Dosage: 70 UNITS
     Route: 058
     Dates: start: 2010

REACTIONS (4)
  - Blood glucose increased [Recovered/Resolved]
  - Drug dose omission by device [Unknown]
  - Device failure [Unknown]
  - Device issue [Unknown]

NARRATIVE: CASE EVENT DATE: 20210701
